FAERS Safety Report 5612285-4 (Version None)
Quarter: 2008Q1

REPORT INFORMATION
  Report Type: 
  Country: None (occurrence: None)
  Receive Date: 20080128
  Receipt Date: 20080122
  Transmission Date: 20080703
  Serious: Yes (Life-Threatening, Hospitalization, Other)
  Sender: FDA-Public Use
  Company Number: 08012392

PATIENT
  Age: 77 Year
  Sex: Female

DRUGS (5)
  1. CITALOPRAM HYDROBROMIDE [Suspect]
     Indication: DEPRESSION
     Dosage: 20MG, QD, ORAL
     Route: 048
  2. RISPERDAL [Suspect]
     Indication: DEPRESSION
     Dosage: 2MG, QD, ORAL
     Route: 048
  3. COTRIMOXAZOLE [Suspect]
     Indication: CYSTITIS
     Dosage: 960MG
  4. RAMIPRIL [Concomitant]
  5. NIFEDIPINE [Concomitant]

REACTIONS (4)
  - ATRIOVENTRICULAR BLOCK [None]
  - ELECTROCARDIOGRAM QT PROLONGED [None]
  - SINUS BRADYCARDIA [None]
  - TORSADE DE POINTES [None]
